FAERS Safety Report 6718413-1 (Version None)
Quarter: 2010Q2

REPORT INFORMATION
  Report Type: 
  Country: None (occurrence: None)
  Receive Date: 20100504
  Receipt Date: 20100419
  Transmission Date: 20101027
  Serious: Yes (Other)
  Sender: FDA-Public Use
  Company Number: ACO_00722_2010

PATIENT
  Sex: Male
  Weight: 92.9874 kg

DRUGS (3)
  1. AMPYRA [Suspect]
     Indication: MULTIPLE SCLEROSIS
     Dosage: 10 MG BID ORAL
     Route: 048
     Dates: start: 20100331, end: 20100412
  2. AVAPRO [Concomitant]
  3. DIAZIDE /00413701/ [Concomitant]

REACTIONS (8)
  - BALANCE DISORDER [None]
  - COGNITIVE DISORDER [None]
  - DECREASED APPETITE [None]
  - DIZZINESS [None]
  - EUPHORIC MOOD [None]
  - GAIT DISTURBANCE [None]
  - HEADACHE [None]
  - PAIN [None]
